FAERS Safety Report 4604409-2 (Version None)
Quarter: 2005Q2

REPORT INFORMATION
  Report Type: 
  Country: None (occurrence: None)
  Receive Date: 20050223
  Receipt Date: 20041105
  Transmission Date: 20051028
  Serious: No
  Sender: FDA-Public Use
  Company Number: PHEH2004US11951

PATIENT
  Age: 61 Year
  Sex: Female

DRUGS (2)
  1. ZELNORM [Suspect]
     Indication: CONSTIPATION
     Dosage: 3 MG, Q48H, ORAL
     Route: 048
     Dates: start: 20040501, end: 20041104
  2. PREMARIN [Concomitant]

REACTIONS (3)
  - PIGMENTED NAEVUS [None]
  - PRURITUS [None]
  - VISION BLURRED [None]
